FAERS Safety Report 14928458 (Version 1)
Quarter: 2018Q2

REPORT INFORMATION
  Report Type: Spontaneous
  Country: US (occurrence: US)
  Receive Date: 20180523
  Receipt Date: 20180523
  Transmission Date: 20180711
  Serious: No
  Sender: FDA-Public Use
  Company Number: US-FDC LIMITED-2017RIS00375

PATIENT
  Sex: Female

DRUGS (3)
  1. LATANOPROST. [Concomitant]
     Active Substance: LATANOPROST
  2. LUMIGAN [Concomitant]
     Active Substance: BIMATOPROST
  3. TIMOLOL MALEATE. [Suspect]
     Active Substance: TIMOLOL MALEATE
     Dosage: 1 DROP, 1X/DAYTO BOTH EYES
     Route: 061
     Dates: start: 201709, end: 2017

REACTIONS (3)
  - Drug dispensing error [Unknown]
  - Device malfunction [Unknown]
  - Ocular hyperaemia [Unknown]
